FAERS Safety Report 9776127 (Version 1)
Quarter: 2013Q4

REPORT INFORMATION
  Report Type: Spontaneous
  Country: GB (occurrence: GB)
  Receive Date: 20131220
  Receipt Date: 20131220
  Transmission Date: 20140711
  Serious: Yes (Other)
  Sender: FDA-Public Use
  Company Number: GB-WATSON-2013-23187

PATIENT
  Age: 49 Year
  Sex: Female
  Weight: 85 kg

DRUGS (5)
  1. QUININE SULPHATE (UNKNOWN) [Suspect]
     Indication: ANALGESIC THERAPY
     Dosage: 300 MG, UNK
     Route: 048
     Dates: start: 20130923, end: 20131020
  2. MICRONOR [Concomitant]
     Indication: PRODUCT USED FOR UNKNOWN INDICATION
     Dosage: UNK
     Route: 065
  3. AGOMELATINE [Concomitant]
     Indication: PRODUCT USED FOR UNKNOWN INDICATION
     Dosage: UNK
     Route: 065
  4. OXYBUTYNIN [Concomitant]
     Indication: PRODUCT USED FOR UNKNOWN INDICATION
     Dosage: UNK
     Route: 065
  5. TOPIRAMATE [Concomitant]
     Indication: PRODUCT USED FOR UNKNOWN INDICATION
     Dosage: UNK
     Route: 065

REACTIONS (2)
  - Anger [Recovered/Resolved]
  - Tinnitus [Unknown]
